FAERS Safety Report 15226109 (Version 1)
Quarter: 2018Q3

REPORT INFORMATION
  Report Type: Spontaneous
  Country: US (occurrence: US)
  Receive Date: 20180706
  Receipt Date: 20180706
  Transmission Date: 20181010
  Serious: Yes (Hospitalization)
  Sender: FDA-Public Use
  Company Number: None

PATIENT
  Age: 64 Year
  Sex: Female
  Weight: 72 kg

DRUGS (1)
  1. ASPIRIN. [Suspect]
     Active Substance: ASPIRIN
     Dates: end: 20180205

REACTIONS (3)
  - Salpingo-oophorectomy bilateral [None]
  - Preventive surgery [None]
  - Hysterectomy [None]

NARRATIVE: CASE EVENT DATE: 20180207
